FAERS Safety Report 20226413 (Version 4)
Quarter: 2022Q1

REPORT INFORMATION
  Report Type: Spontaneous
  Country: PL (occurrence: None)
  Receive Date: 20211224
  Receipt Date: 20220208
  Transmission Date: 20220423
  Serious: Yes (Death)
  Sender: FDA-Public Use
  Company Number: PL-ROCHE-2983557

PATIENT
  Age: 60 Year
  Sex: Male
  Weight: 77.8 kg

DRUGS (2)
  1. OCREVUS [Suspect]
     Active Substance: OCRELIZUMAB
     Indication: Primary progressive multiple sclerosis
     Dosage: THEN NEXT DOSE ON: 10/FEB/2021 (300 MG), 10/FEB/2020 300 MG, 14/JUL/2020 600 MG, 31/DEC/2020?DATE OF
     Route: 065
     Dates: start: 20200129
  2. OLFEN (POLAND) [Concomitant]

REACTIONS (2)
  - Sudden death [Fatal]
  - COVID-19 [Unknown]

NARRATIVE: CASE EVENT DATE: 20211125
